FAERS Safety Report 18018281 (Version 2)
Quarter: 2020Q3

REPORT INFORMATION
  Report Type: Spontaneous
  Country: US (occurrence: US)
  Receive Date: 20200713
  Receipt Date: 20200903
  Transmission Date: 20201103
  Serious: No
  Sender: FDA-Public Use
  Company Number: US-ASTRAZENECA-2020SE86762

PATIENT
  Sex: Female
  Weight: 67.1 kg

DRUGS (2)
  1. BYDUREON [Suspect]
     Active Substance: EXENATIDE
     Indication: TYPE 2 DIABETES MELLITUS
     Dosage: 2.0MG UNKNOWN
     Route: 065
  2. BYDUREON BCISE [Suspect]
     Active Substance: EXENATIDE
     Indication: TYPE 2 DIABETES MELLITUS
     Route: 065

REACTIONS (5)
  - Injection site pain [Recovered/Resolved]
  - Device mechanical issue [Not Recovered/Not Resolved]
  - Device leakage [Not Recovered/Not Resolved]
  - Skin mass [Not Recovered/Not Resolved]
  - Incorrect dose administered [Not Recovered/Not Resolved]
